APPROVED DRUG PRODUCT: CARGLUMIC ACID
Active Ingredient: CARGLUMIC ACID
Strength: 200MG
Dosage Form/Route: TABLET, FOR SUSPENSION;ORAL
Application: A213729 | Product #001 | TE Code: AB
Applicant: NOVITIUM PHARMA LLC
Approved: Oct 13, 2021 | RLD: No | RS: No | Type: RX